FAERS Safety Report 8516545-9 (Version None)
Quarter: 2012Q3

REPORT INFORMATION
  Report Type: 
  Country: None (occurrence: None)
  Receive Date: 20120711
  Receipt Date: 20120711
  Transmission Date: 20120928
  Serious: Yes (Other)
  Sender: FDA-Public Use
  Company Number: None

PATIENT
  Sex: Female

DRUGS (4)
  1. BONIVA [Suspect]
     Indication: OSTEOPOROSIS
     Dosage: EVERY THREE MONTHS IV BOLUS
     Route: 040
  2. SINGULAIR [Concomitant]
  3. ADVAIR DISKUS 100/50 [Concomitant]
  4. ALLEGRA [Concomitant]

REACTIONS (9)
  - FEELING HOT [None]
  - LOCAL SWELLING [None]
  - INSOMNIA [None]
  - FLUSHING [None]
  - PAIN IN EXTREMITY [None]
  - ABASIA [None]
  - ARTHRALGIA [None]
  - MYALGIA [None]
  - BACK PAIN [None]
